FAERS Safety Report 12144291 (Version 1)
Quarter: 2016Q1

REPORT INFORMATION
  Report Type: Spontaneous
  Country: US (occurrence: None)
  Receive Date: 20160303
  Receipt Date: 20160303
  Transmission Date: 20160526
  Serious: No
  Sender: FDA-Public Use
  Company Number: None

PATIENT
  Age: 70 Year
  Sex: Female
  Weight: 58.97 kg

DRUGS (9)
  1. VITAMIN E [Concomitant]
     Active Substance: .ALPHA.-TOCOPHEROL
  2. VITAMIN C [Concomitant]
     Active Substance: ASCORBIC ACID
  3. ARIMIDEX [Suspect]
     Active Substance: ANASTROZOLE
     Indication: BREAST CANCER
     Route: 048
  4. ATIVAN [Concomitant]
     Active Substance: LORAZEPAM
  5. VIT. D, FOLIC ACID, VIT. B - COMPLEX [Concomitant]
     Active Substance: FOLIC ACID\VITAMINS
  6. CALCIUM [Concomitant]
     Active Substance: CALCIUM
  7. FISH OIL [Concomitant]
     Active Substance: FISH OIL
  8. ANTIHISTAMINES [Concomitant]
     Active Substance: ANTIHISTAMINES NOS
  9. VIT. A [Concomitant]

REACTIONS (9)
  - Impaired quality of life [None]
  - Nausea [None]
  - Vomiting [None]
  - Feeling hot [None]
  - Diarrhoea [None]
  - Dizziness [None]
  - White blood cell count decreased [None]
  - Hyperhidrosis [None]
  - Fatigue [None]

NARRATIVE: CASE EVENT DATE: 20160229
